FAERS Safety Report 24318164 (Version 1)
Quarter: 2024Q3

REPORT INFORMATION
  Report Type: Spontaneous
  Country: US (occurrence: None)
  Receive Date: 20240912
  Receipt Date: 20240912
  Transmission Date: 20241017
  Serious: Yes (Other)
  Sender: Public
  Company Number: None

PATIENT
  Age: 40 Year
  Sex: Female
  Weight: 88.65 kg

DRUGS (9)
  1. ESCITALOPRAM [Suspect]
     Active Substance: ESCITALOPRAM OXALATE
     Indication: Anxiety
     Dosage: FREQUENCY : AT BEDTIME;?
     Route: 048
     Dates: start: 20231110, end: 20240601
  2. ESCITALOPRAM [Suspect]
     Active Substance: ESCITALOPRAM OXALATE
     Indication: Attention deficit hyperactivity disorder
  3. ESCITALOPRAM [Suspect]
     Active Substance: ESCITALOPRAM OXALATE
     Indication: Attention deficit hyperactivity disorder
     Dosage: FREQUENCY: AT BEDTIME
     Route: 048
  4. METFORMIN [Concomitant]
     Active Substance: METFORMIN HYDROCHLORIDE
  5. SPIRONOLACTONE [Concomitant]
     Active Substance: SPIRONOLACTONE
  6. VITAMIN D [Concomitant]
     Active Substance: VITAMIN D NOS
  7. VITAMIN B [Concomitant]
     Active Substance: VITAMIN B
  8. FISH OIL [Concomitant]
     Active Substance: FISH OIL
  9. MAGNESIUM GLYCINATE [Concomitant]
     Active Substance: MAGNESIUM GLYCINATE

REACTIONS (10)
  - Middle insomnia [None]
  - Night sweats [None]
  - Brain fog [None]
  - Somnolence [None]
  - Decreased interest [None]
  - Sleep disorder [None]
  - Dizziness [None]
  - Vertigo [None]
  - Loss of personal independence in daily activities [None]
  - Job dissatisfaction [None]

NARRATIVE: CASE EVENT DATE: 20231201
